FAERS Safety Report 8171822-9 (Version None)
Quarter: 2012Q1

REPORT INFORMATION
  Report Type: 
  Country: None (occurrence: None)
  Receive Date: 20120228
  Receipt Date: 20120223
  Transmission Date: 20120608
  Serious: Yes (Other)
  Sender: FDA-Public Use
  Company Number: FI-GLAXOSMITHKLINE-B0784541A

PATIENT
  Age: 60 Year
  Sex: Male

DRUGS (1)
  1. DUTASTERIDE/TAMSULOSIN HYDROCHLORIDE [Suspect]
     Indication: BENIGN PROSTATIC HYPERPLASIA
     Route: 065
     Dates: start: 20100101

REACTIONS (2)
  - BREAST CANCER [None]
  - BREAST MASS [None]
